FAERS Safety Report 7227243-6 (Version None)
Quarter: 2011Q1

REPORT INFORMATION
  Report Type: 
  Country: None (occurrence: None)
  Receive Date: 20110114
  Receipt Date: 20110106
  Transmission Date: 20110831
  Serious: Yes (Other)
  Sender: FDA-Public Use
  Company Number: A0903721A

PATIENT
  Age: 71 Year
  Sex: Male

DRUGS (4)
  1. MULTI-VITAMIN [Concomitant]
  2. AVODART [Suspect]
     Indication: BENIGN PROSTATIC HYPERPLASIA
     Dosage: 1CAP PER DAY
     Route: 048
     Dates: start: 20100901
  3. FLOMAX [Concomitant]
  4. SIMVASTATIN [Concomitant]

REACTIONS (3)
  - PRODUCT QUALITY ISSUE [None]
  - RECTAL HAEMORRHAGE [None]
  - CONSTIPATION [None]
